FAERS Safety Report 18556515 (Version 2)
Quarter: 2021Q1

REPORT INFORMATION
  Report Type: Report from Study
  Country: US (occurrence: US)
  Receive Date: 20201128
  Receipt Date: 20210114
  Transmission Date: 20210419
  Serious: Yes (Hospitalization, Other)
  Sender: FDA-Public Use
  Company Number: NVSC2020US308109

PATIENT
  Age: 66 Year
  Sex: Female

DRUGS (1)
  1. ENTRESTO [Suspect]
     Active Substance: SACUBITRIL\VALSARTAN
     Indication: PRODUCT USED FOR UNKNOWN INDICATION
     Dosage: 200 MG (103/97 MG), BID
     Route: 048

REACTIONS (2)
  - Coronavirus infection [Recovering/Resolving]
  - Neoplasm malignant [Unknown]

NARRATIVE: CASE EVENT DATE: 202012
